APPROVED DRUG PRODUCT: ACETYLCYSTEINE
Active Ingredient: ACETYLCYSTEINE
Strength: 10%
Dosage Form/Route: SOLUTION;INHALATION, ORAL
Application: A219194 | Product #001 | TE Code: AN
Applicant: SOMERSET THERAPEUTICS LLC
Approved: Feb 12, 2025 | RLD: No | RS: No | Type: RX